FAERS Safety Report 13134533 (Version 2)
Quarter: 2017Q1

REPORT INFORMATION
  Report Type: Spontaneous
  Country: JP (occurrence: JP)
  Receive Date: 20170120
  Receipt Date: 20170210
  Transmission Date: 20170428
  Serious: Yes (Other)
  Sender: FDA-Public Use
  Company Number: US-ASTRAZENECA-2017SE05663

PATIENT
  Age: 59 Day
  Sex: Female
  Weight: 8.4 kg

DRUGS (4)
  1. INCREMIN [Suspect]
     Active Substance: FERRIC PYROPHOSPHATE
     Indication: ANAEMIA NEONATAL
     Route: 048
     Dates: start: 20160727
  2. SYNAGIS [Suspect]
     Active Substance: PALIVIZUMAB
     Indication: PREMATURE BABY
     Dosage: UNKNOWN
     Route: 030
     Dates: start: 20161011, end: 20161011
  3. SYNAGIS [Suspect]
     Active Substance: PALIVIZUMAB
     Indication: PREMATURE BABY
     Dosage: 0.65ML UNKNOWN
     Route: 030
     Dates: start: 20160901, end: 20160901
  4. SYNAGIS [Suspect]
     Active Substance: PALIVIZUMAB
     Indication: PREMATURE BABY
     Dosage: 100 MG, 1 ML, 1.0 MG UNKNOWN
     Route: 030
     Dates: start: 20161111, end: 20161111

REACTIONS (4)
  - Radial pulse decreased [Recovered/Resolved]
  - Bradycardia [Recovered/Resolved]
  - Pallor [Recovered/Resolved]
  - Presyncope [Recovered/Resolved]

NARRATIVE: CASE EVENT DATE: 20160901
